FAERS Safety Report 7403680-1 (Version None)
Quarter: 2011Q2

REPORT INFORMATION
  Report Type: 
  Country: None (occurrence: None)
  Receive Date: 20110408
  Receipt Date: 20110328
  Transmission Date: 20111010
  Serious: Yes (Other)
  Sender: FDA-Public Use
  Company Number: PHFR2011GB02231

PATIENT

DRUGS (1)
  1. RAD001 [Suspect]
     Indication: RENAL CELL CARCINOMA

REACTIONS (1)
  - ASTHMA [None]
